FAERS Safety Report 15274730 (Version 1)
Quarter: 2018Q4

REPORT INFORMATION
  Report Type: Spontaneous
  Country: CH (occurrence: CH)
  Receive Date: 20180814
  Receipt Date: 20180814
  Transmission Date: 20190204
  Serious: Yes (Hospitalization)
  Sender: FDA-Public Use
  Company Number: CH-TEVA-2018-CH-938317

PATIENT
  Age: 83 Year
  Sex: Male
  Weight: 84 kg

DRUGS (20)
  1. ESOMEPRAZOL AXAPHARM [Concomitant]
     Route: 048
     Dates: end: 20180707
  2. ENALAPRIL MEPHA [Suspect]
     Active Substance: ENALAPRIL
     Dosage: (20)
     Route: 065
     Dates: end: 20180713
  3. ATORVASTATIN AXAPHARM [Suspect]
     Active Substance: ATORVASTATIN CALCIUM
     Route: 048
     Dates: end: 20180713
  4. PARAGAR [Concomitant]
     Route: 048
     Dates: start: 20180629, end: 20180716
  5. IPRAMOL [Concomitant]
     Active Substance: ALBUTEROL SULFATE\IPRATROPIUM BROMIDE
     Route: 055
     Dates: start: 20180629, end: 20180716
  6. PARACETAMOL SANDOZ [Suspect]
     Active Substance: ACETAMINOPHEN
     Route: 048
     Dates: start: 20180629, end: 20180713
  7. PANTOPRAZOLE [Concomitant]
     Active Substance: PANTOPRAZOLE
     Route: 048
     Dates: start: 20180708, end: 20180716
  8. DUROGESIC [Concomitant]
     Active Substance: FENTANYL
     Dosage: (1)
     Dates: start: 20180708
  9. TOREM [Concomitant]
     Active Substance: TORSEMIDE
     Route: 048
     Dates: start: 20180629, end: 20180716
  10. LAXOBERON [Concomitant]
     Active Substance: SODIUM PICOSULFATE
     Route: 048
     Dates: start: 20180629, end: 20180716
  11. BECOZYME-C FORTE [Concomitant]
     Route: 048
     Dates: start: 20180629, end: 20180716
  12. TEMESTA EXPIDET [Concomitant]
     Active Substance: LORAZEPAM
     Dosage: AS NECESSARY
     Route: 060
  13. ASS CARDIO AXAPHARM [Concomitant]
     Route: 048
     Dates: end: 20180716
  14. BENERVA [Concomitant]
     Active Substance: THIAMINE HYDROCHLORIDE
     Dates: start: 20180629, end: 20180716
  15. TAMSULOSIN-MEPHA [Concomitant]
  16. CO-AMOXICILLIN [Suspect]
     Active Substance: AMOXICILLIN\CLAVULANATE POTASSIUM
     Route: 048
     Dates: start: 20180629, end: 20180629
  17. CO-AMOXICILLIN [Suspect]
     Active Substance: AMOXICILLIN\CLAVULANATE POTASSIUM
     Dates: start: 20180711, end: 20180713
  18. ASS CARDIO AXAPHARM [Concomitant]
     Dates: start: 20180719
  19. PASPERTIN [Concomitant]
     Dates: start: 20180629, end: 20180716
  20. MINALGIN [Concomitant]
     Active Substance: METAMIZOLE
     Route: 048
     Dates: start: 20180629, end: 20180716

REACTIONS (2)
  - Cholestasis [Recovering/Resolving]
  - Drug-induced liver injury [Recovering/Resolving]

NARRATIVE: CASE EVENT DATE: 20180711
